FAERS Safety Report 9275046 (Version 3)
Quarter: 2013Q3

REPORT INFORMATION
  Report Type: Spontaneous
  Country: US (occurrence: None)
  Receive Date: 20130430
  Receipt Date: 20130816
  Transmission Date: 20140515
  Serious: Yes (Hospitalization, Other)
  Sender: FDA-Public Use
  Company Number: 2012-003881

PATIENT
  Age: 64 Year
  Sex: Female
  Weight: 54.4 kg

DRUGS (25)
  1. ACTONEL [Suspect]
     Indication: OSTEOPOROSIS
     Dosage: 35MG ONCE WEEKLY, ORAL
     Route: 048
     Dates: start: 20080407, end: 20080602
  2. ACTONEL [Suspect]
     Indication: OSTEOPENIA
     Dosage: 35MG ONCE WEEKLY, ORAL
     Route: 048
     Dates: start: 20080407, end: 20080602
  3. ACTONEL [Suspect]
     Indication: OSTEOPOROSIS
     Dosage: 5MG DAILY, ORAL
     Route: 048
     Dates: start: 20010829, end: 20020313
  4. ACTONEL [Suspect]
     Indication: OSTEOPENIA
     Dosage: 5MG DAILY, ORAL
     Route: 048
     Dates: start: 20010829, end: 20020313
  5. FOSAMAX [Suspect]
     Indication: OSTEOPOROSIS
     Dosage: WEEKLY
     Dates: start: 200905, end: 201106
  6. FOSAMAX [Suspect]
     Indication: OSTEOPENIA
     Dosage: WEEKLY
     Dates: start: 200905, end: 201106
  7. FOSAMAX PLUS D [Suspect]
     Indication: OSTEOPOROSIS
     Dosage: 70/2800 1/WEEK, ORAL
     Route: 048
     Dates: start: 20100318, end: 201006
  8. FOSAMAX PLUS D [Suspect]
     Indication: OSTEOPENIA
     Dosage: 70/2800 1/WEEK, ORAL
     Route: 048
     Dates: start: 20100318, end: 201006
  9. RISEDRONATE SODIUM [Suspect]
     Indication: OSTEOPOROSIS
     Dosage: DOSAGE
  10. RISEDRONATE SODIUM [Suspect]
     Indication: OSTEOPENIA
     Dosage: DOSAGE
  11. ALENDRONATE [Suspect]
     Indication: OSTEOPOROSIS
     Dates: start: 201006, end: 201106
  12. ALENDRONATE [Suspect]
     Indication: OSTEOPENIA
     Dates: start: 201006, end: 201106
  13. FLONASE (FLUTICASONE PROPIONATE) [Concomitant]
  14. VOLTAREN (DICLOFENAC) [Concomitant]
  15. CELEBREX (CELECOXIB) [Concomitant]
  16. MOBIC (MELOXICAM) [Concomitant]
  17. GLUCOSAMINE CHONDROITIN (CHONDROITIN SULFATE, GLUCOSAMINE) [Concomitant]
  18. ASPIRIN (ACETYLSALICYLIC ACID) [Concomitant]
  19. FISH OIL (FISH OIL) [Concomitant]
  20. BIOTIN (BIOTIN) [Concomitant]
  21. MULTIVITAMINS, COMBINATIONS [Concomitant]
  22. MAGNESIUM (MAGNESIUM) [Concomitant]
  23. CALCIUM (CALCIUM) [Concomitant]
  24. VITAMIN D (COLECALCIFEROL) [Concomitant]
  25. DRISDOL (ERGOCALCIFEROL) [Concomitant]

REACTIONS (9)
  - Atypical femur fracture [None]
  - Pain in extremity [None]
  - Femur fracture [None]
  - Fall [None]
  - Pathological fracture [None]
  - Limb injury [None]
  - Stress fracture [None]
  - Fracture displacement [None]
  - Low turnover osteopathy [None]
